FAERS Safety Report 7428359-1 (Version None)
Quarter: 2011Q2

REPORT INFORMATION
  Report Type: 
  Country: None (occurrence: None)
  Receive Date: 20110412
  Receipt Date: 20110328
  Transmission Date: 20111010
  Serious: Yes (Hospitalization, Other)
  Sender: FDA-Public Use
  Company Number: GER/USA/11/0017899

PATIENT
  Age: 59 Year
  Sex: Male

DRUGS (2)
  1. BACLOFEN [Suspect]
     Indication: OSTEOMYELITIS
     Dosage: 40 MG, 1 IN 6 HR; 10 MG, 1 IN 6 HR
  2. TIZANIDINE (TIZANIDINE) [Suspect]
     Indication: OSTEOMYELITIS
     Dosage: 6 MG, AT BEDTIME

REACTIONS (15)
  - RENAL FAILURE ACUTE [None]
  - HYPOPHAGIA [None]
  - MUSCLE RIGIDITY [None]
  - EXTRAPYRAMIDAL DISORDER [None]
  - AGITATION [None]
  - CONFUSIONAL STATE [None]
  - DRUG INTERACTION [None]
  - HALLUCINATION, VISUAL [None]
  - DELIRIUM [None]
  - WITHDRAWAL SYNDROME [None]
  - TACHYCARDIA [None]
  - RENAL TUBULAR NECROSIS [None]
  - DISORIENTATION [None]
  - BLOOD PRESSURE DECREASED [None]
  - BLOOD PRESSURE INCREASED [None]
